FAERS Safety Report 8698301 (Version 4)
Quarter: 2019Q1

REPORT INFORMATION
  Report Type: Report from Study
  Country: CA (occurrence: CA)
  Receive Date: 20120802
  Receipt Date: 20190307
  Transmission Date: 20190418
  Serious: Yes (Other)
  Sender: FDA-Public Use
  Company Number: PHHY2010CA37020

PATIENT
  Sex: Female

DRUGS (6)
  1. RANITIDINE. [Concomitant]
     Active Substance: RANITIDINE
     Indication: PRODUCT USED FOR UNKNOWN INDICATION
     Dosage: UNK
     Route: 065
  2. DESENEX NOS [Concomitant]
     Active Substance: CLOTRIMAZOLE OR MICONAZOLE NITRATE
     Indication: PRODUCT USED FOR UNKNOWN INDICATION
     Dosage: UNK
     Route: 065
     Dates: start: 200910
  3. SANDOSTATIN LAR DEPOT [Suspect]
     Active Substance: OCTREOTIDE ACETATE
     Indication: ACROMEGALY
     Dosage: 30 MG, QMO EVERY 4 WEEKS
     Route: 030
     Dates: start: 20060119
  4. SANDOSTATIN LAR DEPOT [Suspect]
     Active Substance: OCTREOTIDE ACETATE
     Dosage: 30 MG, QMO(ONCE A MONTH)
     Route: 030
     Dates: start: 20150225
  5. SENOKOT [Concomitant]
     Active Substance: SENNOSIDES
     Indication: PRODUCT USED FOR UNKNOWN INDICATION
     Dosage: UNK
     Route: 065
  6. SANDOSTATIN LAR DEPOT [Suspect]
     Active Substance: OCTREOTIDE ACETATE
     Dosage: 30 MG, QMO (ONCE A MONTH)
     Route: 030
     Dates: start: 20190227

REACTIONS (8)
  - Blood pressure systolic increased [Unknown]
  - Blood pressure decreased [Unknown]
  - Thyroid cyst [Unknown]
  - Nasopharyngitis [Recovered/Resolved]
  - Goitre [Not Recovered/Not Resolved]
  - Heart rate increased [Unknown]
  - Blood growth hormone increased [Unknown]
  - Injection site mass [Unknown]
